FAERS Safety Report 16103551 (Version 1)
Quarter: 2019Q1

REPORT INFORMATION
  Report Type: Spontaneous
  Country: FR (occurrence: FR)
  Receive Date: 20190322
  Receipt Date: 20190322
  Transmission Date: 20190418
  Serious: Yes (Hospitalization, Other)
  Sender: FDA-Public Use
  Company Number: FR-SA-2019SA075840

PATIENT
  Age: 89 Year
  Sex: Female
  Weight: 48.2 kg

DRUGS (2)
  1. ISONIAZID. [Suspect]
     Active Substance: ISONIAZID
     Indication: LATENT TUBERCULOSIS
     Dosage: 150 MG, QD
     Route: 048
     Dates: start: 20190117, end: 20190201
  2. RIFADINE [Suspect]
     Active Substance: RIFAMPIN
     Indication: LATENT TUBERCULOSIS
     Dosage: 400 MG, QD
     Route: 048
     Dates: start: 20190117, end: 20190201

REACTIONS (2)
  - Pancreatitis acute [Recovered/Resolved]
  - Hepatocellular injury [Recovering/Resolving]

NARRATIVE: CASE EVENT DATE: 20190201
